FAERS Safety Report 23462510 (Version 3)
Quarter: 2024Q4

REPORT INFORMATION
  Report Type: Report from Study
  Country: CA (occurrence: CA)
  Receive Date: 20240131
  Receipt Date: 20241030
  Transmission Date: 20250115
  Serious: Yes (Hospitalization, Other)
  Sender: GLAXOSMITHKLINE
  Company Number: CA-GLAXOSMITHKLINE-CA2023156112

PATIENT

DRUGS (1)
  1. MEPOLIZUMAB [Suspect]
     Active Substance: MEPOLIZUMAB
     Indication: Asthma
     Dosage: 100 MG, Q4W
     Route: 058
     Dates: start: 20200120

REACTIONS (5)
  - Cardiac failure [Unknown]
  - Oxygen saturation decreased [Unknown]
  - Hospitalisation [Not Recovered/Not Resolved]
  - Pneumonia [Unknown]
  - Asthma [Unknown]
